FAERS Safety Report 5119032-3 (Version None)
Quarter: 2006Q3

REPORT INFORMATION
  Report Type: 
  Country: None (occurrence: None)
  Receive Date: 20060927
  Receipt Date: 20060914
  Transmission Date: 20061208
  Serious: Yes (Other)
  Sender: FDA-Public Use
  Company Number: 163-21880-06090607

PATIENT
  Age: 74 Year
  Sex: Male

DRUGS (2)
  1. REVLIMID [Suspect]
     Indication: COMPLEX REGIONAL PAIN SYNDROME
     Dosage: 10 MG, 1 IN 1 D, ORAL
     Route: 048
     Dates: start: 20060816, end: 20060907
  2. WARFARIN SODIUM [Concomitant]

REACTIONS (4)
  - HAEMATEMESIS [None]
  - HAEMORRHAGE [None]
  - PHARYNGEAL HAEMORRHAGE [None]
  - SINUS DISORDER [None]
